FAERS Safety Report 23889235 (Version 1)
Quarter: 2024Q2

REPORT INFORMATION
  Report Type: Report from Study
  Country: CA (occurrence: CA)
  Receive Date: 20240523
  Receipt Date: 20240523
  Transmission Date: 20240716
  Serious: Yes (Other)
  Sender: FDA-Public Use
  Company Number: CA-AMGEN-CANSL2024001829

PATIENT
  Sex: Female

DRUGS (2)
  1. AVSOLA [Suspect]
     Active Substance: INFLIXIMAB-AXXQ
     Indication: Rheumatoid arthritis
     Dosage: 500 MILLIGRAM, Q8WK
     Route: 065
     Dates: start: 20220422
  2. AVSOLA [Suspect]
     Active Substance: INFLIXIMAB-AXXQ
     Indication: Crohn^s disease
     Dosage: 500 MILLIGRAM, Q8WK
     Route: 065

REACTIONS (5)
  - Systemic lupus erythematosus [Recovered/Resolved]
  - Gonorrhoea [Unknown]
  - Haematochezia [Unknown]
  - Tooth disorder [Unknown]
  - Asthenia [Unknown]
